FAERS Safety Report 4482747-4 (Version None)
Quarter: 2004Q3

REPORT INFORMATION
  Report Type: 
  Country: None (occurrence: None)
  Receive Date: 20040921
  Receipt Date: 20040622
  Transmission Date: 20050211
  Serious: Yes (Hospitalization)
  Sender: FDA-Public Use
  Company Number: 163-20785-04060704(0)

PATIENT
  Age: 63 Year
  Sex: Male
  Weight: 82.8 kg

DRUGS (2)
  1. THALOMID [Suspect]
     Indication: MULTIPLE MYELOMA
     Dosage: 200 MG DAILY ORAL
     Route: 048
     Dates: start: 20040327, end: 20040330
  2. MELPHALAN (MELPHALAN) [Suspect]
     Indication: MULTIPLE MYELOMA
     Dosage: 368 MG INTRAVENOUS
     Route: 042
     Dates: start: 20040606, end: 20040606

REACTIONS (3)
  - CHEST PAIN [None]
  - HYPOTENSION [None]
  - PERICARDITIS [None]
